FAERS Safety Report 8987373 (Version 2)
Quarter: 2013Q1

REPORT INFORMATION
  Report Type: Spontaneous
  Country: JP (occurrence: JP)
  Receive Date: 20121226
  Receipt Date: 20130206
  Transmission Date: 20140127
  Serious: Yes (Hospitalization, Other)
  Sender: FDA-Public Use
  Company Number: JP-ROCHE-1169183

PATIENT
  Age: 76 Year
  Sex: Female
  Weight: 47 kg

DRUGS (5)
  1. HERCEPTIN [Suspect]
     Indication: BREAST CANCER
     Dosage: DOSAGE IS UNCERTAIN.
     Route: 041
     Dates: start: 20120703, end: 20120703
  2. HERCEPTIN [Suspect]
     Indication: BREAST CANCER
     Route: 041
     Dates: start: 20120710, end: 20121030
  3. HERCEPTIN [Suspect]
     Indication: BREAST CANCER
     Route: 041
     Dates: start: 20121106
  4. TAXOL [Concomitant]
     Indication: BREAST CANCER
     Dosage: DOSAGE IS UNCERTAIN.
     Route: 041
     Dates: start: 20120703, end: 20121030
  5. ARIMIDEX [Concomitant]
     Indication: HORMONE THERAPY
     Route: 048
     Dates: start: 20120717, end: 20121210

REACTIONS (8)
  - Rash [Recovering/Resolving]
  - Stomatitis [Recovered/Resolved]
  - Myalgia [Recovered/Resolved]
  - Oedema [Recovering/Resolving]
  - Hypophagia [Unknown]
  - Hepatic function abnormal [Unknown]
  - White blood cell count increased [Unknown]
  - Oropharyngeal pain [Unknown]
